FAERS Safety Report 12769421 (Version 1)
Quarter: 2016Q3

REPORT INFORMATION
  Report Type: Spontaneous
  Country: US (occurrence: US)
  Receive Date: 20160921
  Receipt Date: 20160921
  Transmission Date: 20161109
  Serious: No
  Sender: FDA-Public Use
  Company Number: US-IMPAX LABORATORIES, INC-2016-IPXL-00301

PATIENT
  Age: 62 Year
  Sex: Male

DRUGS (1)
  1. DEXEDRINE SPANSULE [Suspect]
     Active Substance: DEXTROAMPHETAMINE SULFATE
     Dosage: 5 MG 4 TABLETS IN THE MORNING AND 2 TABLETS IN THE AFTERNOON
     Route: 048

REACTIONS (1)
  - Drug effect incomplete [Not Recovered/Not Resolved]
